FAERS Safety Report 20836229 (Version 1)
Quarter: 2022Q2

REPORT INFORMATION
  Report Type: Spontaneous
  Country: US (occurrence: US)
  Receive Date: 20220516
  Receipt Date: 20220516
  Transmission Date: 20220721
  Serious: Yes (Death, Other)
  Sender: FDA-Public Use
  Company Number: US-BRISTOL-MYERS SQUIBB COMPANY-2022-038979

PATIENT
  Age: 81 Year
  Sex: Male

DRUGS (2)
  1. OPDIVO [Suspect]
     Active Substance: NIVOLUMAB
     Indication: Neuroendocrine carcinoma of the skin
     Dosage: DOSE : OPDIVO  80MG  / YERVOY 250MG;     FREQ : EVERY 3 WEEKS?STRENGTH AND PRESENTATION OF THE AE :
     Route: 042
     Dates: start: 20220331
  2. YERVOY [Suspect]
     Active Substance: IPILIMUMAB
     Indication: Neuroendocrine carcinoma of the skin
     Dosage: STRENGTH AND PRESENTATION OF THE AE : OPDIVO VIAL  100MG, YERVOY  50MG AND 200MG VIALS
     Route: 042

REACTIONS (2)
  - Death [Fatal]
  - Intentional product use issue [Unknown]

NARRATIVE: CASE EVENT DATE: 20220401
